FAERS Safety Report 19299311 (Version 1)
Quarter: 2021Q2

REPORT INFORMATION
  Report Type: Report from Study
  Country: TR (occurrence: TR)
  Receive Date: 20210524
  Receipt Date: 20210524
  Transmission Date: 20210717
  Serious: Yes (Death)
  Sender: FDA-Public Use
  Company Number: TR-PFIZER INC-2021578296

PATIENT
  Age: 64 Year
  Sex: Female

DRUGS (1)
  1. GLASDEGIB [Suspect]
     Active Substance: GLASDEGIB

REACTIONS (1)
  - Death [Fatal]
